FAERS Safety Report 7095747-5 (Version None)
Quarter: 2010Q4

REPORT INFORMATION
  Report Type: 
  Country: None (occurrence: None)
  Receive Date: 20101111
  Receipt Date: 20100129
  Transmission Date: 20110411
  Serious: Yes (Death, Life-Threatening, Hospitalization)
  Sender: FDA-Public Use
  Company Number: PHHO2009DE16208

PATIENT
  Sex: Male
  Weight: 91.5 kg

DRUGS (10)
  1. SANDIMMUNE [Suspect]
     Indication: RENAL TRANSPLANT
     Dosage: 300 MG/DAILY
     Route: 042
     Dates: start: 20091221, end: 20091226
  2. SANDIMMUNE [Suspect]
     Dosage: 100 MG/DAILY
     Route: 042
     Dates: start: 20091227, end: 20091231
  3. MYFORTIC [Suspect]
     Indication: RENAL TRANSPLANT
     Dosage: UNK
     Dates: end: 20091221
  4. NO TREATMENT RECEIVED NOMED [Suspect]
     Dosage: NO TREATMENT
  5. DECORTIN [Suspect]
     Indication: RENAL TRANSPLANT
     Dosage: 50 MG/DAILY
     Route: 042
     Dates: start: 20091222, end: 20091222
  6. DECORTIN [Suspect]
     Dosage: 130 MG/DAILY
     Route: 042
     Dates: start: 20091223, end: 20091223
  7. DECORTIN [Suspect]
     Dosage: 40 MG/DAILY
     Route: 042
     Dates: start: 20091224, end: 20091224
  8. DECORTIN [Suspect]
     Dosage: 10 MG/DAILY
     Route: 042
     Dates: start: 20091225, end: 20091227
  9. DECORTIN [Suspect]
     Dosage: 60 MG/DAILY
     Route: 042
     Dates: start: 20091228, end: 20091228
  10. DECORTIN [Suspect]
     Dosage: 10 MG/DAILY
     Route: 042
     Dates: start: 20091229, end: 20091231

REACTIONS (3)
  - ENDOCARDITIS [None]
  - MULTI-ORGAN FAILURE [None]
  - PNEUMONIA [None]
